FAERS Safety Report 9214893 (Version 2)
Quarter: 2013Q3

REPORT INFORMATION
  Report Type: Report from Study
  Country: JP (occurrence: JP)
  Receive Date: 20130405
  Receipt Date: 20130703
  Transmission Date: 20140515
  Serious: Yes (Hospitalization)
  Sender: FDA-Public Use
  Company Number: JP-VIIV HEALTHCARE LIMITED-B0680197A

PATIENT
  Age: 46 Year
  Sex: Female

DRUGS (14)
  1. LEXIVA [Suspect]
     Indication: HIV INFECTION
     Dosage: 700MG TWICE PER DAY
     Route: 048
     Dates: start: 20091021
  2. EPZICOM [Suspect]
     Indication: HIV INFECTION
     Dosage: 1IUAX PER DAY
     Route: 048
     Dates: start: 20050316, end: 20090722
  3. EPZICOM [Suspect]
     Indication: HIV INFECTION
     Dosage: 1IUAX PER DAY
     Route: 048
     Dates: start: 20091021
  4. NORVIR [Concomitant]
     Indication: HIV INFECTION
     Route: 048
     Dates: start: 20051117, end: 20090722
  5. NORVIR [Concomitant]
     Indication: HIV INFECTION
     Route: 048
     Dates: start: 20091021, end: 20110614
  6. NORVIR [Concomitant]
     Indication: HIV INFECTION
     Route: 048
     Dates: start: 20110615
  7. VIRACEPT [Concomitant]
     Indication: HIV INFECTION
     Route: 048
     Dates: end: 20051116
  8. REYATAZ [Concomitant]
     Indication: HIV INFECTION
     Dosage: 300MG PER DAY
     Route: 048
     Dates: start: 20051117, end: 20090722
  9. ALDACTONE A [Concomitant]
     Indication: CARDIAC FAILURE
     Dosage: 25MG PER DAY
     Route: 048
     Dates: start: 20090401
  10. BLOPRESS [Concomitant]
     Indication: CARDIAC FAILURE
     Dosage: 2MG PER DAY
     Route: 048
     Dates: start: 20090401
  11. MYSLEE [Concomitant]
     Route: 048
     Dates: start: 20090401, end: 20090729
  12. PACETCOOL [Concomitant]
     Indication: PYELONEPHRITIS
     Dosage: 1G FOUR TIMES PER DAY
     Route: 042
     Dates: start: 20090722, end: 20090723
  13. ROCEMERCK [Concomitant]
     Indication: PYELONEPHRITIS
     Dosage: 2G TWICE PER DAY
     Route: 042
     Dates: start: 20090724, end: 20090730
  14. EPADEL S [Concomitant]
     Indication: HYPERLIPIDAEMIA
     Dosage: 900MG TWICE PER DAY
     Route: 048
     Dates: start: 20120627

REACTIONS (4)
  - Pyelonephritis [Recovering/Resolving]
  - Cholelithiasis [Recovered/Resolved]
  - Rash [Recovering/Resolving]
  - Blood uric acid increased [Unknown]
